FAERS Safety Report 5938641-2 (Version None)
Quarter: 2008Q4

REPORT INFORMATION
  Report Type: 
  Country: None (occurrence: None)
  Receive Date: 20081103
  Receipt Date: 20081023
  Transmission Date: 20090506
  Serious: Yes (Other)
  Sender: FDA-Public Use
  Company Number: US-KINGPHARMUSA00001-K200801234

PATIENT

DRUGS (10)
  1. CYTOMEL [Suspect]
     Indication: THYROID DISORDER
     Dosage: 20 MCG, QD
     Route: 048
     Dates: start: 20060101, end: 20060101
  2. CYTOMEL [Suspect]
     Dosage: 10 MCG, QD
     Route: 048
     Dates: start: 20060101, end: 20060101
  3. CYTOMEL [Suspect]
     Dosage: 15 MCG, QD
     Route: 048
     Dates: end: 20060101
  4. CYTOMEL [Suspect]
     Dosage: 20 MCG, QD
     Route: 048
     Dates: end: 20060101
  5. CYTOMEL [Suspect]
     Dosage: 10 MCG, QD
     Route: 048
     Dates: start: 20060101, end: 20060101
  6. CYTOMEL [Suspect]
     Dosage: 5 MCG, TID (ALTERNATING WITH 2 MCG QD)
  7. CYTOMEL [Suspect]
     Dosage: 2 MCG, QD (ALTERNATING WITH 5 MCG TID)
  8. CYTOMEL [Suspect]
     Dosage: 10 MCG, QOD
  9. CYTOMEL [Suspect]
     Dosage: 15 MCG, QOD
  10. SYNTHROID [Concomitant]
     Indication: THYROID DISORDER
     Dosage: .075 MG, BID
     Dates: start: 19800101

REACTIONS (19)
  - ABNORMAL DREAMS [None]
  - ANOREXIA [None]
  - CHOKING [None]
  - COUGH [None]
  - DYSPHAGIA [None]
  - DYSPNOEA [None]
  - FEELING ABNORMAL [None]
  - HEADACHE [None]
  - HORMONE LEVEL ABNORMAL [None]
  - HUNGER [None]
  - HYPOAESTHESIA [None]
  - LIVER DISORDER [None]
  - MENTAL DISORDER [None]
  - NECK PAIN [None]
  - PHARYNGEAL OEDEMA [None]
  - PLEURISY [None]
  - WEIGHT DECREASED [None]
  - WEIGHT INCREASED [None]
  - WEIGHT LOSS POOR [None]
